FAERS Safety Report 19880448 (Version 2)
Quarter: 2021Q4

REPORT INFORMATION
  Report Type: Report from Study
  Country: US (occurrence: US)
  Receive Date: 20210925
  Receipt Date: 20211228
  Transmission Date: 20220303
  Serious: Yes (Other)
  Sender: FDA-Public Use
  Company Number: US-ABBVIE-21K-163-4092263-00

PATIENT
  Age: 43 Year
  Sex: Male
  Weight: 93.070 kg

DRUGS (1)
  1. HUMIRA [Suspect]
     Active Substance: ADALIMUMAB
     Indication: Psoriatic arthropathy
     Route: 058

REACTIONS (2)
  - Blindness unilateral [Unknown]
  - Visual impairment [Unknown]

NARRATIVE: CASE EVENT DATE: 20011101
